FAERS Safety Report 10472487 (Version 5)
Quarter: 2015Q2

REPORT INFORMATION
  Report Type: Spontaneous
  Country: US (occurrence: None)
  Receive Date: 20140922
  Receipt Date: 20150506
  Transmission Date: 20150821
  Serious: Yes (Death, Hospitalization, Other)
  Sender: FDA-Public Use
  Company Number: ADR-2014-01707

PATIENT
  Age: 66 Year
  Sex: Female

DRUGS (3)
  1. HYDROMORPHONE [Suspect]
     Active Substance: HYDROMORPHONE
     Indication: CANCER PAIN
     Dosage: UNK
  2. COMPOUNDED BACLOFEN [Suspect]
     Active Substance: BACLOFEN
     Indication: CANCER PAIN
     Dosage: UNK
  3. INTRATHECAL BUPIVACAINE 30MG/ML [Concomitant]
     Active Substance: BUPIVACAINE

REACTIONS (8)
  - Sedation [None]
  - Oesophageal carcinoma [None]
  - Disorientation [None]
  - Somnolence [None]
  - Mental status changes [None]
  - Flat affect [None]
  - Implant site extravasation [None]
  - Device dislocation [None]

NARRATIVE: CASE EVENT DATE: 20140829
